FAERS Safety Report 10210751 (Version 2)
Quarter: 2014Q2

REPORT INFORMATION
  Report Type: Spontaneous
  Country: FR (occurrence: FR)
  Receive Date: 20140602
  Receipt Date: 20140618
  Transmission Date: 20141212
  Serious: Yes (Other)
  Sender: FDA-Public Use
  Company Number: PHHY2014FR066803

PATIENT
  Age: 69 Year
  Sex: Female
  Weight: 57 kg

DRUGS (3)
  1. TEGRETOL [Suspect]
     Indication: FACIAL NEURALGIA
     Dosage: 200 MG, BID
     Route: 048
     Dates: start: 20140320, end: 20140401
  2. LAROXYL [Concomitant]
     Dosage: UNK UKN, UNK
  3. DOLIPRANE [Concomitant]
     Dosage: 1000 MG, UNK

REACTIONS (14)
  - Leukopenia [Recovered/Resolved]
  - Blood disorder [Recovered/Resolved]
  - Depression [Recovered/Resolved]
  - Neutrophil count abnormal [Unknown]
  - Language disorder [Recovered/Resolved]
  - Tetany [Recovered/Resolved]
  - Vertigo [Recovered/Resolved]
  - Pyrexia [Recovered/Resolved]
  - Visual impairment [Recovering/Resolving]
  - Confusional state [Recovered/Resolved]
  - Myalgia [Recovering/Resolving]
  - Nausea [Recovered/Resolved]
  - Fatigue [Not Recovered/Not Resolved]
  - Overdose [Unknown]
